FAERS Safety Report 7019188-1 (Version None)
Quarter: 2010Q3

REPORT INFORMATION
  Report Type: 
  Country: None (occurrence: None)
  Receive Date: 20100928
  Receipt Date: 20100224
  Transmission Date: 20110219
  Serious: Yes (Hospitalization, Other)
  Sender: FDA-Public Use
  Company Number: JP-SANOFI-AVENTIS-2010SA002558

PATIENT
  Age: 68 Year
  Sex: Male
  Weight: 68 kg

DRUGS (14)
  1. BLINDED THERAPY [Suspect]
     Indication: ANGINA PECTORIS
     Route: 048
     Dates: start: 20090116, end: 20090410
  2. BLINDED THERAPY [Suspect]
     Route: 048
     Dates: start: 20090116, end: 20090410
  3. CLOPIDOGREL BISULFATE [Suspect]
     Indication: ANGINA PECTORIS
     Route: 048
     Dates: start: 20090411, end: 20100115
  4. CLOPIDOGREL BISULFATE [Suspect]
     Route: 048
     Dates: start: 20090411, end: 20100115
  5. ASPIRIN [Concomitant]
     Route: 048
     Dates: start: 20090116, end: 20091015
  6. ASPIRIN [Concomitant]
     Route: 048
     Dates: start: 20091021
  7. OMEPRAL [Concomitant]
     Route: 048
     Dates: start: 20090116
  8. LIPITOR [Concomitant]
     Route: 048
     Dates: start: 20090116
  9. LOSARTAN POTASSIUM [Concomitant]
     Route: 048
     Dates: start: 20090509
  10. ATARAX [Concomitant]
     Route: 048
     Dates: start: 20100114, end: 20100114
  11. FLOMOX [Concomitant]
     Route: 048
     Dates: start: 20100114, end: 20100116
  12. HEPARIN [Concomitant]
     Dosage: DOSE:4000 UNIT(S)
     Route: 042
     Dates: start: 20100114, end: 20100114
  13. OMNIPAQUE 140 [Concomitant]
     Route: 042
     Dates: start: 20100114, end: 20100114
  14. XYLOCAINE [Concomitant]
     Route: 042
     Dates: start: 20100114, end: 20100114

REACTIONS (1)
  - IN-STENT CORONARY ARTERY RESTENOSIS [None]
